FAERS Safety Report 18029469 (Version 4)
Quarter: 2024Q1

REPORT INFORMATION
  Report Type: Spontaneous
  Country: CA (occurrence: CA)
  Receive Date: 20200715
  Receipt Date: 20240325
  Transmission Date: 20240409
  Serious: Yes (Hospitalization, Other)
  Sender: FDA-Public Use
  Company Number: CA-BAUSCH-BL-2020-019407

PATIENT
  Age: 70 Year
  Sex: Female

DRUGS (15)
  1. ALBUTEROL [Suspect]
     Active Substance: ALBUTEROL
     Indication: Asthma
     Dosage: DOSAGE FORM: NOT SPECIFIED
     Route: 055
  2. ALVESCO [Suspect]
     Active Substance: CICLESONIDE
     Indication: Product used for unknown indication
     Dosage: DOSAGE FORM: AEROSOL, METERED DOSE
     Route: 055
  3. ALVESCO [Suspect]
     Active Substance: CICLESONIDE
     Dosage: DOSAGE FORM: AEROSOL, METERED DOSE
     Route: 065
  4. ALVESCO [Suspect]
     Active Substance: CICLESONIDE
     Dosage: DOSAGE FORM: AEROSOL, METERED DOSE
     Route: 065
  5. ATROVENT [Suspect]
     Active Substance: IPRATROPIUM BROMIDE
     Indication: Product used for unknown indication
     Dosage: DOSAGE FORM: NOT SPECIFIED
     Route: 055
  6. OLODATEROL HYDROCHLORIDE\TIOTROPIUM BROMIDE MONOHYDRATE [Suspect]
     Active Substance: OLODATEROL HYDROCHLORIDE\TIOTROPIUM BROMIDE MONOHYDRATE
     Indication: Product used for unknown indication
     Dosage: OLODATEROL HYDROCHLORIDE/TIOTROPIUM BROMIDE MONOHYDRATE
     Route: 055
  7. PREDNISONE [Suspect]
     Active Substance: PREDNISONE
     Indication: Product used for unknown indication
     Dosage: DOSAGE FORM: NOT SPECIFIED
     Route: 048
  8. PREDNISONE [Suspect]
     Active Substance: PREDNISONE
     Dosage: DOSAGE FORM: NOT SPECIFIED
     Route: 048
  9. OLODATEROL HYDROCHLORIDE\TIOTROPIUM BROMIDE MONOHYDRATE [Suspect]
     Active Substance: OLODATEROL HYDROCHLORIDE\TIOTROPIUM BROMIDE MONOHYDRATE
     Indication: Product used for unknown indication
     Dosage: ROUTE OF ADMIN: INHALATION
     Route: 065
  10. AZITHROMYCIN [Suspect]
     Active Substance: AZITHROMYCIN
     Indication: Product used for unknown indication
     Route: 065
  11. AZITHROMYCIN [Suspect]
     Active Substance: AZITHROMYCIN
     Dosage: PMS AZITHROMYCIN
     Route: 065
  12. MEPOLIZUMAB [Suspect]
     Active Substance: MEPOLIZUMAB
     Indication: Asthma
     Route: 058
  13. JANUVIA [Concomitant]
     Active Substance: SITAGLIPTIN PHOSPHATE
     Indication: Product used for unknown indication
     Dosage: NOT SPECIFIED
     Route: 065
  14. METFORMIN [Concomitant]
     Active Substance: METFORMIN HYDROCHLORIDE
     Indication: Product used for unknown indication
     Route: 065
  15. SITAGLIPTIN [Concomitant]
     Active Substance: SITAGLIPTIN
     Indication: Product used for unknown indication
     Route: 065

REACTIONS (7)
  - Asthma [Not Recovered/Not Resolved]
  - Full blood count abnormal [Not Recovered/Not Resolved]
  - Full blood count abnormal [Not Recovered/Not Resolved]
  - Dyspnoea [Not Recovered/Not Resolved]
  - Cough [Not Recovered/Not Resolved]
  - Type 2 diabetes mellitus [Not Recovered/Not Resolved]
  - Wheezing [Not Recovered/Not Resolved]
